FAERS Safety Report 10185666 (Version 2)
Quarter: 2014Q3

REPORT INFORMATION
  Report Type: Other
  Country: PL (occurrence: PL)
  Receive Date: 20140521
  Receipt Date: 20140812
  Transmission Date: 20150326
  Serious: Yes (Death)
  Sender: FDA-Public Use
  Company Number: PL-NAPPMUNDI-DEU-2014-0014566

PATIENT
  Age: 69 Year
  Sex: Female

DRUGS (3)
  1. KETOPROFEN. [Concomitant]
     Active Substance: KETOPROFEN
     Dosage: 100 MG, DAILY
     Route: 048
  2. CODEINE W/PARACETAMOL [Concomitant]
     Active Substance: ACETAMINOPHEN\CODEINE PHOSPHATE
     Route: 048
  3. OXYCONTIN [Suspect]
     Active Substance: OXYCODONE HYDROCHLORIDE
     Indication: CANCER PAIN
     Dosage: UNK, SEE TEXT
     Route: 048

REACTIONS (2)
  - Malignant neoplasm progression [Fatal]
  - Constipation [Unknown]
